FAERS Safety Report 6935992-X (Version None)
Quarter: 2010Q3

REPORT INFORMATION
  Report Type: 
  Country: None (occurrence: None)
  Receive Date: 20100823
  Receipt Date: 20100817
  Transmission Date: 20110219
  Serious: Yes (Other)
  Sender: FDA-Public Use
  Company Number: US-BAYER-201029300NA

PATIENT
  Age: 57 Year
  Sex: Female

DRUGS (9)
  1. AVELOX [Suspect]
     Indication: SINUSITIS
     Dosage: UNIT DOSE: 400 MG
     Route: 048
     Dates: start: 20100111, end: 20100729
  2. ALLEGRA [Concomitant]
  3. ACCOLATE [Concomitant]
  4. CAEVITO [Concomitant]
  5. PYRIDOXINE HCL [Concomitant]
  6. DETROL LA [Concomitant]
  7. ESTRADIOL [Concomitant]
  8. NASONEX [Concomitant]
  9. FENOGLIDE [Concomitant]

REACTIONS (2)
  - TENDON RUPTURE [None]
  - TENDONITIS [None]
